FAERS Safety Report 9684839 (Version 2)
Quarter: 2013Q4

REPORT INFORMATION
  Report Type: Spontaneous
  Country: DE (occurrence: DE)
  Receive Date: 20131112
  Receipt Date: 20131112
  Transmission Date: 20140711
  Serious: Yes (Other)
  Sender: FDA-Public Use
  Company Number: DE-AMGEN-DEUSP2013042734

PATIENT
  Age: 44 Year
  Sex: Female
  Weight: 78 kg

DRUGS (6)
  1. ENBREL [Suspect]
     Indication: PRODUCT USED FOR UNKNOWN INDICATION
     Dosage: 50 MG, WEEKLY
     Route: 065
     Dates: start: 201210, end: 20130610
  2. METHOTREXATE [Concomitant]
     Dosage: UNK
  3. CANDESARTAN [Concomitant]
     Dosage: UNK
  4. HYDROCHLOROTHIAZIDE [Concomitant]
     Dosage: UNK
  5. PREDNISOLON                        /00016201/ [Concomitant]
     Dosage: UNK
  6. ARCOXIA [Concomitant]
     Dosage: UNK

REACTIONS (4)
  - Malaise [Recovering/Resolving]
  - Local swelling [Recovering/Resolving]
  - Injection site pain [Recovering/Resolving]
  - Injection site erythema [Recovering/Resolving]
